FAERS Safety Report 8785734 (Version 4)
Quarter: 2013Q1

REPORT INFORMATION
  Report Type: Report from Study
  Country: JP (occurrence: JP)
  Receive Date: 20120914
  Receipt Date: 20130115
  Transmission Date: 20140127
  Serious: Yes (Hospitalization)
  Sender: FDA-Public Use
  Company Number: JP-JNJFOC-20120903881

PATIENT
  Age: 52 Year
  Sex: Male
  Weight: 78 kg

DRUGS (11)
  1. STELARA [Suspect]
     Indication: PSORIASIS
     Route: 058
     Dates: start: 20110830
  2. STELARA [Suspect]
     Indication: PSORIASIS
     Route: 058
     Dates: start: 20110927
  3. STELARA [Suspect]
     Indication: PSORIASIS
     Route: 058
     Dates: start: 20111220
  4. STELARA [Suspect]
     Indication: PSORIASIS
     Route: 058
     Dates: start: 20120313
  5. STELARA [Suspect]
     Indication: PSORIASIS
     Route: 058
     Dates: start: 20120605
  6. STELARA [Suspect]
     Indication: PSORIASIS
     Route: 058
     Dates: start: 20120828
  7. MAINTATE [Concomitant]
     Route: 048
  8. OLMETEC [Concomitant]
     Route: 048
  9. EPADEL S [Concomitant]
     Route: 048
  10. MYSER [Concomitant]
     Indication: PSORIASIS
     Route: 061
  11. OXAROL [Concomitant]
     Indication: PSORIASIS
     Route: 061

REACTIONS (1)
  - Cellulitis [Recovering/Resolving]
